FAERS Safety Report 11101088 (Version 1)
Quarter: 2015Q2

REPORT INFORMATION
  Report Type: Other
  Country: IT (occurrence: IT)
  Receive Date: 20150508
  Receipt Date: 20150508
  Transmission Date: 20150821
  Serious: Yes (Other)
  Sender: FDA-Public Use
  Company Number: IT-APOTEX-2015AP008843

PATIENT
  Age: 44 Year
  Sex: Male

DRUGS (2)
  1. CLARITHROMYCIN. [Suspect]
     Active Substance: CLARITHROMYCIN
     Indication: OROPHARYNGEAL PAIN
  2. CLARITHROMYCIN. [Suspect]
     Active Substance: CLARITHROMYCIN
     Indication: PYREXIA
     Dosage: 1000 MG, DAILY
     Route: 048
     Dates: start: 20150107, end: 20150109

REACTIONS (1)
  - Toxic skin eruption [Recovering/Resolving]

NARRATIVE: CASE EVENT DATE: 20150108
